FAERS Safety Report 7625730-X (Version None)
Quarter: 2011Q3

REPORT INFORMATION
  Report Type: 
  Country: None (occurrence: None)
  Receive Date: 20110721
  Receipt Date: 20110713
  Transmission Date: 20111222
  Serious: Yes (Hospitalization)
  Sender: FDA-Public Use
  Company Number: JP-BRISTOL-MYERS SQUIBB COMPANY-15905771

PATIENT
  Age: 8 Year
  Sex: Male

DRUGS (4)
  1. VEPESID [Suspect]
     Indication: ACUTE MYELOID LEUKAEMIA
     Dosage: COURSES: 3 CONSOLIDATION THERAPY
  2. IDARUBICIN HCL [Suspect]
     Indication: ACUTE MYELOID LEUKAEMIA
  3. MITOXANTRONE [Suspect]
     Indication: ACUTE MYELOID LEUKAEMIA
  4. CYTARABINE [Suspect]
     Indication: ACUTE MYELOID LEUKAEMIA

REACTIONS (4)
  - ENDOCARDITIS [None]
  - MENINGITIS [None]
  - CARDIAC FAILURE [None]
  - HYDROCEPHALUS [None]
